FAERS Safety Report 14612060 (Version 1)
Quarter: 2018Q1

REPORT INFORMATION
  Report Type: Spontaneous
  Country: US (occurrence: US)
  Receive Date: 20180308
  Receipt Date: 20180308
  Transmission Date: 20180509
  Serious: Yes (Other)
  Sender: FDA-Public Use
  Company Number: US-009507513-1803USA001410

PATIENT
  Sex: Female

DRUGS (1)
  1. PRINIVIL [Suspect]
     Active Substance: LISINOPRIL
     Indication: HYPERTENSION
     Dosage: 0.5 DF, BID
     Route: 048
     Dates: start: 1998

REACTIONS (12)
  - Nephrolithiasis [Recovered/Resolved]
  - Arthritis [Recovered/Resolved]
  - Oropharyngeal discomfort [Recovered/Resolved]
  - Arrhythmia [Recovered/Resolved]
  - Back pain [Recovered/Resolved]
  - Blood urine present [Recovered/Resolved]
  - Oesophageal perforation [Recovered/Resolved]
  - Chest pain [Recovered/Resolved]
  - Wrong technique in product usage process [Unknown]
  - Loss of consciousness [Recovered/Resolved]
  - Cough [Recovered/Resolved]
  - Internal haemorrhage [Recovered/Resolved]

NARRATIVE: CASE EVENT DATE: 1998
